FAERS Safety Report 9813945 (Version 3)
Quarter: 2014Q1

REPORT INFORMATION
  Report Type: Spontaneous
  Country: JP (occurrence: JP)
  Receive Date: 20140113
  Receipt Date: 20140307
  Transmission Date: 20141002
  Serious: Yes (Hospitalization, Other)
  Sender: FDA-Public Use
  Company Number: PHHY2014JP002823

PATIENT
  Age: 37 Year
  Sex: Female
  Weight: 56 kg

DRUGS (16)
  1. NEORAL [Suspect]
     Indication: PUSTULAR PSORIASIS
     Dosage: 275 MG, UNK
     Route: 048
     Dates: start: 2009
  2. NEORAL [Suspect]
     Dosage: 125 MG, UNK
     Route: 048
     Dates: start: 20110408
  3. NEORAL [Suspect]
     Dosage: 250 MG, UNK
     Route: 048
     Dates: start: 20110813, end: 20110817
  4. NEORAL [Suspect]
     Dosage: 150 MG, DAILY
     Route: 048
     Dates: start: 201108
  5. PREDNISOLONE [Suspect]
     Indication: PUSTULAR PSORIASIS
     Dosage: 20 MG, UNK
     Route: 048
  6. PREDNISOLONE [Suspect]
     Dosage: 50 MG, UNK
     Route: 048
     Dates: end: 20110910
  7. PREDNISOLONE [Suspect]
     Dosage: 50 UNK, UNK
     Route: 048
  8. REMICADE [Concomitant]
     Indication: PUSTULAR PSORIASIS
     Dosage: 300 MG, UNK
     Route: 042
     Dates: start: 20110818
  9. REMICADE [Concomitant]
     Dosage: 270 MG, UNK
     Route: 042
  10. REMICADE [Concomitant]
     Dosage: 265 MG, UNK
     Route: 042
  11. INFLIXIMAB [Concomitant]
  12. CEFAMEZIN ALPHA [Concomitant]
     Indication: INFECTION
     Dosage: 1 G, UNK
     Route: 042
     Dates: start: 20110813, end: 20110819
  13. MUCOSTA [Concomitant]
     Indication: GASTRITIS
     Dosage: 100 MG, UNK
     Route: 048
     Dates: start: 20110408, end: 20110819
  14. OXAROL [Concomitant]
     Dosage: 1.5 G, UNK
     Dates: start: 20110408
  15. LIDOMEX [Concomitant]
     Dosage: 1.5 G, UNK
     Dates: start: 20110408
  16. MYSER [Concomitant]
     Dosage: 0.7 G, UNK
     Dates: start: 20110408

REACTIONS (11)
  - Pustular psoriasis [Recovering/Resolving]
  - Condition aggravated [Recovering/Resolving]
  - Rash pustular [Recovering/Resolving]
  - Generalised erythema [Recovering/Resolving]
  - Rash [Recovering/Resolving]
  - Nail dystrophy [Recovering/Resolving]
  - Hyperthermia [Recovering/Resolving]
  - Renal impairment [Recovered/Resolved]
  - Maternal exposure during pregnancy [Unknown]
  - Normal newborn [Unknown]
  - Therapeutic response decreased [Unknown]
